FAERS Safety Report 7411879-3 (Version None)
Quarter: 2011Q2

REPORT INFORMATION
  Report Type: 
  Country: None (occurrence: None)
  Receive Date: 20110413
  Receipt Date: 20101119
  Transmission Date: 20111010
  Serious: Yes (Disabling)
  Sender: FDA-Public Use
  Company Number: US-BAYER-201029617NA

PATIENT
  Sex: Female
  Weight: 63.492 kg

DRUGS (1)
  1. YASMIN [Suspect]
     Indication: CONTRACEPTION
     Route: 048
     Dates: start: 20031101, end: 20040915

REACTIONS (3)
  - THROMBOSIS [None]
  - DEPRESSION [None]
  - DEEP VEIN THROMBOSIS [None]
